FAERS Safety Report 4403881-0 (Version None)
Quarter: 2004Q3

REPORT INFORMATION
  Report Type: 
  Country: None (occurrence: None)
  Receive Date: 20040719
  Receipt Date: 20040712
  Transmission Date: 20050211
  Serious: Yes (Other)
  Sender: FDA-Public Use
  Company Number: 2003-07-3399

PATIENT
  Age: 43 Year
  Sex: Female

DRUGS (4)
  1. RIBAVIRIN [Suspect]
     Indication: SEVERE ACUTE RESPIRATORY SYNDROME
     Dosage: 600 MG Q8H ORAL
     Route: 048
     Dates: start: 20030330, end: 20030331
  2. VIRAZOLE [Concomitant]
     Indication: SEVERE ACUTE RESPIRATORY SYNDROME
     Dosage: 1 GM Q6H INTRAVENOUS
     Route: 042
     Dates: start: 20030325, end: 20030329
  3. CALCIUM CARBONATE TABLETS [Concomitant]
  4. LEVOFLOXACIN [Concomitant]

REACTIONS (2)
  - BLOOD MAGNESIUM DECREASED [None]
  - HAEMOLYTIC ANAEMIA [None]
